FAERS Safety Report 5974465-8 (Version None)
Quarter: 2008Q4

REPORT INFORMATION
  Report Type: 
  Country: None (occurrence: None)
  Receive Date: 20081201
  Receipt Date: 20081121
  Transmission Date: 20090506
  Serious: Yes (Other)
  Sender: FDA-Public Use
  Company Number: SG-PFIZER INC-2008099555

PATIENT
  Age: 29 Year
  Sex: Male

DRUGS (2)
  1. VARENICLINE TABLETS [Suspect]
     Indication: SMOKING CESSATION THERAPY
     Route: 048
     Dates: start: 20081101, end: 20081101
  2. ANTIHYPERTENSIVES [Concomitant]

REACTIONS (6)
  - AGITATION [None]
  - DEPRESSION [None]
  - HALLUCINATION [None]
  - HUNGER [None]
  - SELF INJURIOUS BEHAVIOUR [None]
  - SUICIDAL IDEATION [None]
